FAERS Safety Report 6128752-3 (Version None)
Quarter: 2009Q1

REPORT INFORMATION
  Report Type: 
  Country: None (occurrence: None)
  Receive Date: 20090319
  Receipt Date: 20090309
  Transmission Date: 20090719
  Serious: Yes (Other)
  Sender: FDA-Public Use
  Company Number: 1000005186

PATIENT
  Age: 30 Year
  Sex: Female
  Weight: 74 kg

DRUGS (2)
  1. FOSFOMYCIN (FOSFOMYCIN TROMETAMOL) (GRANULATE) [Suspect]
     Indication: CYSTITIS NONINFECTIVE
     Dosage: 3000 MG (3000 MG, 1 IN 1 D), ORAL
     Route: 048
     Dates: start: 20090130, end: 20090130
  2. BIORACEF [Suspect]
     Indication: CYSTITIS NONINFECTIVE
     Dosage: 1000 MG (500 MG, 2 IN 1 D), ORAL
     Route: 048
     Dates: start: 20090130, end: 20090130

REACTIONS (2)
  - DRUG EXPOSURE DURING PREGNANCY [None]
  - URTICARIA [None]
